FAERS Safety Report 9618208 (Version 1)
Quarter: 2013Q4

REPORT INFORMATION
  Report Type: Spontaneous
  Country: BR (occurrence: BR)
  Receive Date: 20131014
  Receipt Date: 20131014
  Transmission Date: 20140711
  Serious: Yes (Other)
  Sender: FDA-Public Use
  Company Number: BR-BIOGENIDEC-2013BI099251

PATIENT
  Age: 51 Year
  Sex: Female

DRUGS (6)
  1. AVONEX [Suspect]
     Indication: MULTIPLE SCLEROSIS
     Route: 030
     Dates: start: 20100220, end: 20120522
  2. AVONEX [Suspect]
     Indication: MULTIPLE SCLEROSIS
     Route: 030
     Dates: start: 20120601
  3. PROPANOLOL [Concomitant]
  4. TENSALIV [Concomitant]
  5. SERTRALINE [Concomitant]
  6. AMITRIPTYLIN [Concomitant]

REACTIONS (8)
  - Hypertension [Unknown]
  - Nervousness [Unknown]
  - Alanine aminotransferase abnormal [Not Recovered/Not Resolved]
  - Aspartate aminotransferase abnormal [Not Recovered/Not Resolved]
  - Nausea [Unknown]
  - Dizziness [Unknown]
  - Intervertebral disc protrusion [Unknown]
  - Abdominal distension [Unknown]
